FAERS Safety Report 18522039 (Version 1)
Quarter: 2020Q4

REPORT INFORMATION
  Report Type: Report from Study
  Country: US (occurrence: US)
  Receive Date: 20201119
  Receipt Date: 20201119
  Transmission Date: 20210114
  Serious: Yes (Other)
  Sender: FDA-Public Use
  Company Number: US-SUNOVION-2020SUN003373

PATIENT
  Age: 85 Year
  Sex: Male

DRUGS (1)
  1. KYNMOBI [Suspect]
     Active Substance: APOMORPHINE HYDROCHLORIDE
     Indication: PARKINSON^S DISEASE
     Dosage: 10 MG
     Route: 060
     Dates: start: 20201103

REACTIONS (4)
  - Blood pressure decreased [Unknown]
  - Nausea [Unknown]
  - Dizziness [Unknown]
  - Syncope [Unknown]

NARRATIVE: CASE EVENT DATE: 20201103
